FAERS Safety Report 11242829 (Version 3)
Quarter: 2017Q3

REPORT INFORMATION
  Report Type: Spontaneous
  Country: FR (occurrence: FR)
  Receive Date: 20150707
  Receipt Date: 20170809
  Transmission Date: 20171127
  Serious: Yes (Hospitalization, Other)
  Sender: FDA-Public Use
  Company Number: FR-GLAXOSMITHKLINE-FR2015GSK096710

PATIENT
  Age: 42 Year
  Sex: Male

DRUGS (17)
  1. ALBUMINE [Concomitant]
     Dosage: 20 G, 1D
     Route: 042
     Dates: start: 20141110, end: 20141113
  2. RANIPLEX [Suspect]
     Active Substance: RANITIDINE HYDROCHLORIDE
     Indication: GASTROOESOPHAGEAL REFLUX DISEASE
     Dosage: 300 MG, 1D
     Route: 048
     Dates: start: 20141111, end: 20141204
  3. ROCEPHINE [Concomitant]
     Active Substance: CEFTRIAXONE SODIUM
     Dosage: 1 G, 1D
     Route: 042
     Dates: start: 20141109, end: 20141115
  4. NOROXINE [Concomitant]
     Active Substance: NORFLOXACIN
     Dosage: 400 MG, 1D
     Route: 048
     Dates: end: 20141204
  5. KAYEXALATE [Concomitant]
     Active Substance: SODIUM POLYSTYRENE SULFONATE
     Dosage: UNK
     Route: 048
     Dates: start: 20141111, end: 20141111
  6. FUROSEMIDE. [Concomitant]
     Active Substance: FUROSEMIDE
     Indication: CIRRHOSIS ALCOHOLIC
  7. DUPHALAC [Concomitant]
     Active Substance: LACTULOSE
     Dosage: 2 DF, BID
     Route: 048
     Dates: start: 20141110
  8. FUROSEMIDE. [Concomitant]
     Active Substance: FUROSEMIDE
     Indication: PROPHYLAXIS
     Dosage: 125 MG, QD
  9. ALDACTONE [Concomitant]
     Active Substance: SPIRONOLACTONE
     Dosage: 50 MG, 1D
     Route: 048
  10. NORFLOXACIN [Concomitant]
     Active Substance: NORFLOXACIN
     Indication: PERITONITIS
  11. LASILIX [Concomitant]
     Active Substance: FUROSEMIDE
     Dosage: 125 MG, 1D
     Route: 048
  12. SMECTA [Concomitant]
     Active Substance: MONTMORILLONITE
     Dosage: 6 G, 1D
     Route: 048
     Dates: start: 20141111, end: 20141116
  13. SPIRONOLACTONE. [Concomitant]
     Active Substance: SPIRONOLACTONE
     Indication: CIRRHOSIS ALCOHOLIC
  14. XATRAL [Concomitant]
     Active Substance: ALFUZOSIN
     Dosage: 10 MG, 1D
     Route: 048
     Dates: start: 20141110, end: 20141123
  15. SPIRONOLACTONE. [Concomitant]
     Active Substance: SPIRONOLACTONE
     Indication: PROPHYLAXIS
     Dosage: 50 MG, QD
     Route: 065
  16. NORFLOXACIN [Concomitant]
     Active Substance: NORFLOXACIN
     Indication: PROPHYLAXIS
     Dosage: 400 MG, QD
  17. DIFFU K [Concomitant]
     Active Substance: POTASSIUM CHLORIDE
     Dosage: UNK
     Route: 048
     Dates: start: 20141115, end: 20141118

REACTIONS (14)
  - Agitation [Recovered/Resolved]
  - Tachyphrenia [Recovered/Resolved]
  - Disinhibition [Recovered/Resolved]
  - Speech disorder [Recovered/Resolved]
  - Insomnia [Recovered/Resolved]
  - Coma [Unknown]
  - Disorganised speech [Recovered/Resolved]
  - Psychomotor hyperactivity [Recovered/Resolved]
  - Mania [Recovered/Resolved]
  - Obsessive-compulsive disorder [Recovered/Resolved]
  - Logorrhoea [Recovered/Resolved]
  - Delusion [Recovered/Resolved]
  - Persecutory delusion [Recovered/Resolved]
  - Hepatic encephalopathy [Unknown]

NARRATIVE: CASE EVENT DATE: 20141115
